FAERS Safety Report 4447875-8 (Version None)
Quarter: 2004Q3

REPORT INFORMATION
  Report Type: 
  Country: None (occurrence: None)
  Receive Date: 20040910
  Receipt Date: 20040901
  Transmission Date: 20050211
  Serious: Yes (Hospitalization)
  Sender: FDA-Public Use
  Company Number: 2004UW18474

PATIENT
  Age: 80 Year

DRUGS (1)
  1. CRESTOR [Suspect]

REACTIONS (1)
  - CEREBROVASCULAR ACCIDENT [None]
